FAERS Safety Report 15344154 (Version 1)
Quarter: 2018Q3

REPORT INFORMATION
  Report Type: Report from Study
  Country: BR (occurrence: BR)
  Receive Date: 20180903
  Receipt Date: 20180903
  Transmission Date: 20181010
  Serious: Yes (Other)
  Sender: FDA-Public Use
  Company Number: BR-EMD SERONO-9041917

PATIENT
  Age: 17 Year
  Sex: Male

DRUGS (1)
  1. REBIF [Suspect]
     Active Substance: INTERFERON BETA-1A
     Indication: MULTIPLE SCLEROSIS
     Route: 058

REACTIONS (4)
  - Immunodeficiency [Unknown]
  - Influenza [Unknown]
  - Herpes virus infection [Unknown]
  - Blood test abnormal [Unknown]

NARRATIVE: CASE EVENT DATE: 201806
